FAERS Safety Report 6370289-0 (Version None)
Quarter: 2009Q3

REPORT INFORMATION
  Report Type: 
  Country: None (occurrence: None)
  Receive Date: 20090918
  Receipt Date: 20090903
  Transmission Date: 20100115
  Serious: No
  Sender: FDA-Public Use
  Company Number: 20097356

PATIENT
  Sex: Male

DRUGS (1)
  1. LIORESAL [Suspect]
     Indication: MUSCLE SPASTICITY
     Dosage: MCG, AILY, INTRATHECAL
     Route: 037

REACTIONS (3)
  - CONDITION AGGRAVATED [None]
  - MUSCLE SPASTICITY [None]
  - SEROMA [None]
